FAERS Safety Report 24030690 (Version 1)
Quarter: 2024Q2

REPORT INFORMATION
  Report Type: Report from Study
  Country: IT (occurrence: IT)
  Receive Date: 20240628
  Receipt Date: 20240628
  Transmission Date: 20240716
  Serious: Yes (Other)
  Sender: FDA-Public Use
  Company Number: None

PATIENT
  Age: 45 Year
  Sex: Male

DRUGS (2)
  1. PACLITAXEL [Suspect]
     Active Substance: PACLITAXEL
     Indication: Gastric cancer
     Route: 042
     Dates: start: 20240516, end: 20240523
  2. CYRAMZA [Suspect]
     Active Substance: RAMUCIRUMAB
     Indication: Product used for unknown indication
     Dosage: 380 MG DAY 1 AND 15 OF A 28 DAY CYCLE
     Route: 042
     Dates: start: 20240516, end: 20240516

REACTIONS (2)
  - Neutropenia [Not Recovered/Not Resolved]
  - Off label use [Not Recovered/Not Resolved]

NARRATIVE: CASE EVENT DATE: 20240516
